FAERS Safety Report 16565741 (Version 3)
Quarter: 2019Q3

REPORT INFORMATION
  Report Type: Spontaneous
  Country: US (occurrence: US)
  Receive Date: 20190712
  Receipt Date: 20190827
  Transmission Date: 20191004
  Serious: No
  Sender: FDA-Public Use
  Company Number: US-PFIZER INC-2019294912

PATIENT
  Age: 66 Year
  Sex: Male

DRUGS (2)
  1. EUCRISA [Suspect]
     Active Substance: CRISABOROLE
     Indication: DERMATITIS CONTACT
  2. EUCRISA [Suspect]
     Active Substance: CRISABOROLE
     Indication: ECZEMA
     Dosage: APPLY A THIN LAYER TO AFFECTED AREA(S) TWICE DAILY
     Route: 061

REACTIONS (5)
  - Application site pain [Unknown]
  - Condition aggravated [Unknown]
  - Application site exfoliation [Unknown]
  - Application site erythema [Unknown]
  - Application site pruritus [Unknown]
